FAERS Safety Report 16254145 (Version 1)
Quarter: 2019Q2

REPORT INFORMATION
  Report Type: Spontaneous
  Country: US (occurrence: US)
  Receive Date: 20190430
  Receipt Date: 20190430
  Transmission Date: 20190711
  Serious: Yes (Other)
  Sender: FDA-Public Use
  Company Number: US-ROCHE-2309583

PATIENT
  Age: 89 Year
  Sex: Female

DRUGS (1)
  1. XOLAIR [Suspect]
     Active Substance: OMALIZUMAB
     Indication: CHRONIC SPONTANEOUS URTICARIA
     Dosage: ONCE A MONTH , ONGOING: NO
     Route: 058
     Dates: start: 201809, end: 201903

REACTIONS (1)
  - Anaphylactic reaction [Recovered/Resolved]
